FAERS Safety Report 18663320 (Version 1)
Quarter: 2020Q4

REPORT INFORMATION
  Report Type: Spontaneous
  Country: GB (occurrence: GB)
  Receive Date: 20201224
  Receipt Date: 20201224
  Transmission Date: 20210114
  Serious: Yes (Hospitalization)
  Sender: FDA-Public Use
  Company Number: GB-VERTEX PHARMACEUTICALS-2020-022727

PATIENT
  Sex: Male

DRUGS (17)
  1. LEVEMIR [Concomitant]
     Active Substance: INSULIN DETEMIR
     Dosage: 100 UNITS/ML SOLUTION FOR INJECTION 3 ML PRE FILLED PENS
     Route: 058
  2. OMEPRAZOLE. [Concomitant]
     Active Substance: OMEPRAZOLE
     Dosage: UNK, QD
  3. DORNASE ALFA. [Concomitant]
     Active Substance: DORNASE ALFA
  4. WATER FOR INJECTIONS [Concomitant]
     Active Substance: WATER
     Dosage: 2 ML AMPOULES, ONE TAKEN BID TO MIX WITH COLOMYCIN NEB
  5. AZATHIOPRINE. [Concomitant]
     Active Substance: AZATHIOPRINE
     Dosage: 100 MG ONCE DAILY
  6. KAFTRIO [Suspect]
     Active Substance: ELEXACAFTOR\IVACAFTOR\TEZACAFTOR
     Indication: CYSTIC FIBROSIS
     Dosage: 2 TAB (75 MG IVACAFTOR/ 50 MG TEZACAFTOR/ 100 MG ELEXACAFTOR) AM, QD
     Route: 048
     Dates: start: 20201029
  7. PROMIXIN [THIAMPHENICOL] [Concomitant]
     Active Substance: THIAMPHENICOL
     Dosage: 30 UNITS DOSE, 1 OR 2 EVERY 12 HOURS
  8. AVAMYS [Concomitant]
     Active Substance: FLUTICASONE FUROATE
     Dosage: 27.5 MICROGRAMS/DOSE NASAL SPRAY
  9. ADOPORT [Concomitant]
     Active Substance: TACROLIMUS
     Dosage: UNK, BID
  10. VITAMIN E [Concomitant]
     Active Substance: .ALPHA.-TOCOPHEROL
     Dosage: 400 UNIT CAPSULE
  11. GAVISCON ADVANCE PEPPERMINT [Concomitant]
     Dosage: 1 OR TWO 5ML SPOONFULL TO BE TAKEN AFTER MEALS AND AT BEDTIME
     Route: 048
  12. TACROLIMUS. [Concomitant]
     Active Substance: TACROLIMUS
  13. NOVORAPID [Concomitant]
     Active Substance: INSULIN ASPART
     Dosage: 100 UNITS PER ML SOLUTION
     Route: 058
  14. KALYDECO [Suspect]
     Active Substance: IVACAFTOR
     Indication: CYSTIC FIBROSIS
     Dosage: 1 TAB (150 MG IVACAFTOR) PM
     Route: 048
     Dates: start: 20201029
  15. ASPIRIN [ACETYLSALICYLIC ACID] [Concomitant]
     Active Substance: ASPIRIN
     Dosage: 75 MILLIGRAM, QD
  16. PREDNISOLONE. [Concomitant]
     Active Substance: PREDNISOLONE
     Dosage: 5 MILLIGRAM, QD
  17. CREON [Concomitant]
     Active Substance: PANCRELIPASE AMYLASE\PANCRELIPASE LIPASE\PANCRELIPASE PROTEASE
     Dosage: 7 MEAL 3-4 SNACK

REACTIONS (3)
  - Blood bilirubin increased [Unknown]
  - Blood alkaline phosphatase increased [Recovering/Resolving]
  - Alanine aminotransferase increased [Recovering/Resolving]

NARRATIVE: CASE EVENT DATE: 20201102
